FAERS Safety Report 19099557 (Version 1)
Quarter: 2021Q2

REPORT INFORMATION
  Report Type: Other
  Country: IT (occurrence: IT)
  Receive Date: 20210406
  Receipt Date: 20210406
  Transmission Date: 20210717
  Serious: Yes (Other)
  Sender: FDA-Public Use
  Company Number: IT-VALIDUS PHARMACEUTICALS LLC-IT-2021VAL000610

PATIENT
  Age: 46 Year
  Sex: Female

DRUGS (1)
  1. FUROSEMIDE. [Suspect]
     Active Substance: FUROSEMIDE
     Indication: PRODUCT USED FOR UNKNOWN INDICATION
     Dosage: 4 DF, QD
     Route: 048

REACTIONS (3)
  - Head injury [Unknown]
  - Syncope [Unknown]
  - Fall [Unknown]

NARRATIVE: CASE EVENT DATE: 20180622
